FAERS Safety Report 7274396-X (Version None)
Quarter: 2011Q1

REPORT INFORMATION
  Report Type: 
  Country: None (occurrence: None)
  Receive Date: 20110201
  Receipt Date: 20110201
  Transmission Date: 20110831
  Serious: Yes (Hospitalization)
  Sender: FDA-Public Use
  Company Number: None

PATIENT
  Sex: Female
  Weight: 7.8 kg

DRUGS (2)
  1. SYNAGIS [Suspect]
     Indication: PREMATURE BABY
     Dosage: 15 MG/KG EVERY MONTH IM
     Route: 030
     Dates: start: 20100421, end: 20101228
  2. SYNAGIS [Suspect]
     Dates: start: 20100421, end: 20101228

REACTIONS (6)
  - PYREXIA [None]
  - NEUTROPENIA [None]
  - CAPILLARY NAIL REFILL TEST ABNORMAL [None]
  - APNOEA [None]
  - TACHYCARDIA [None]
  - MEDICAL DEVICE COMPLICATION [None]
